FAERS Safety Report 11038727 (Version 5)
Quarter: 2016Q3

REPORT INFORMATION
  Report Type: Spontaneous
  Country: US (occurrence: US)
  Receive Date: 20150416
  Receipt Date: 20160714
  Transmission Date: 20161109
  Serious: Yes (Hospitalization, Other)
  Sender: FDA-Public Use
  Company Number: US-009507513-1504USA013052

PATIENT
  Sex: Male
  Weight: 61.68 kg

DRUGS (2)
  1. LEXAPRO [Suspect]
     Active Substance: ESCITALOPRAM OXALATE
     Indication: DEPRESSION
     Dosage: 10 MG, QD
     Route: 048
  2. PROPECIA [Suspect]
     Active Substance: FINASTERIDE
     Indication: ALOPECIA
     Dosage: 1 MG, QD
     Route: 048
     Dates: start: 1997, end: 2000

REACTIONS (23)
  - Endocrine disorder [Not Recovered/Not Resolved]
  - Loss of libido [Unknown]
  - Depression [Unknown]
  - Depression [Not Recovered/Not Resolved]
  - Ejaculation disorder [Not Recovered/Not Resolved]
  - Erectile dysfunction [Not Recovered/Not Resolved]
  - Hand fracture [Unknown]
  - Testicular atrophy [Unknown]
  - Penile size reduced [Unknown]
  - Painful ejaculation [Unknown]
  - Generalised anxiety disorder [Not Recovered/Not Resolved]
  - Gastrooesophageal reflux disease [Unknown]
  - Brain injury [Not Recovered/Not Resolved]
  - Penis injury [Not Recovered/Not Resolved]
  - Insomnia [Recovering/Resolving]
  - Sunburn [Unknown]
  - Skin lesion [Unknown]
  - Organic erectile dysfunction [Unknown]
  - Sexual dysfunction [Not Recovered/Not Resolved]
  - Essential hypertension [Not Recovered/Not Resolved]
  - Haemorrhoidal haemorrhage [Unknown]
  - Hormone level abnormal [Not Recovered/Not Resolved]
  - Nocturia [Unknown]

NARRATIVE: CASE EVENT DATE: 1997
